FAERS Safety Report 4561839-5 (Version None)
Quarter: 2005Q1

REPORT INFORMATION
  Report Type: 
  Country: None (occurrence: None)
  Receive Date: 20050125
  Receipt Date: 20050110
  Transmission Date: 20050727
  Serious: Yes (Other)
  Sender: FDA-Public Use
  Company Number: 200510040BWH

PATIENT
  Age: 70 Year
  Sex: Female

DRUGS (11)
  1. AVELOX [Suspect]
     Indication: SINUSITIS
     Dosage: 400 MG, QD, ORAL
     Route: 048
     Dates: start: 20041019, end: 20041025
  2. FLEXERIL [Concomitant]
  3. EXTRA STRENGTH TYLENOL [Concomitant]
  4. CARDIZEM [Concomitant]
  5. DIOVAN [Concomitant]
  6. HYDROCHLOROTHIAZIDE [Concomitant]
  7. METFORMIN HCL [Concomitant]
  8. IONOPHORESIS [Concomitant]
  9. CORTISONE [Concomitant]
  10. BENADRYL [Concomitant]
  11. CIPROFLOXACIN HYDROCHLORIDE [Concomitant]

REACTIONS (7)
  - ARTHRALGIA [None]
  - CYSTITIS [None]
  - INSOMNIA [None]
  - PAIN [None]
  - PAIN IN EXTREMITY [None]
  - ROTATOR CUFF SYNDROME [None]
  - URTICARIA GENERALISED [None]
